FAERS Safety Report 20638999 (Version 1)
Quarter: 2022Q1

REPORT INFORMATION
  Report Type: Other
  Country: US (occurrence: None)
  Receive Date: 20220326
  Receipt Date: 20220326
  Transmission Date: 20220423
  Serious: Yes (Other)
  Sender: FDA-Public Use
  Company Number: US-ROCHE-2946389

PATIENT
  Sex: Male

DRUGS (14)
  1. ERIVEDGE [Suspect]
     Active Substance: VISMODEGIB
     Indication: Salivary gland cancer
     Dosage: DAILY 5 TIMES PER WEEK
     Route: 048
  2. ERIVEDGE [Suspect]
     Active Substance: VISMODEGIB
     Indication: Chronic spontaneous urticaria
  3. ATORVASTATIN [Concomitant]
     Active Substance: ATORVASTATIN
     Dosage: TAKE 1 TAB 40 MG TOTAL BY MOUTH ONCE A DAY
  4. CELEBREX [Concomitant]
     Active Substance: CELECOXIB
     Dosage: TAKE 1 CAPSULE 200 MG TOTAL BY MOUTH ONCE A DAY
  5. VOLTAREN [Concomitant]
     Active Substance: DICLOFENAC SODIUM
  6. FERROUS SULFATE [Concomitant]
     Active Substance: FERROUS SULFATE
  7. VIBRAMYCIN [Concomitant]
     Active Substance: DOXYCYCLINE
  8. FEXOFENADINE HYDROCHLORIDE [Concomitant]
     Active Substance: FEXOFENADINE HYDROCHLORIDE
  9. HYDROCODONE [Concomitant]
     Active Substance: HYDROCODONE
  10. LEVOTHYROXINE [Concomitant]
     Active Substance: LEVOTHYROXINE
  11. METHOCARBAMOL [Concomitant]
     Active Substance: METHOCARBAMOL
  12. MUPIROCIN [Concomitant]
     Active Substance: MUPIROCIN
  13. OMEPRAZOLE [Concomitant]
     Active Substance: OMEPRAZOLE
  14. TAMSULOSIN [Concomitant]
     Active Substance: TAMSULOSIN

REACTIONS (2)
  - Off label use [Unknown]
  - Metastases to bone [Unknown]
